FAERS Safety Report 13508474 (Version 1)
Quarter: 2017Q2

REPORT INFORMATION
  Report Type: Report from Study
  Country: US (occurrence: US)
  Receive Date: 20170503
  Receipt Date: 20170503
  Transmission Date: 20170830
  Serious: Yes (Other)
  Sender: FDA-Public Use
  Company Number: US-UCBSA-2017016421

PATIENT
  Age: 2 Year
  Sex: Male
  Weight: 2.6 kg

DRUGS (15)
  1. CERTOLIZUMAB PEGOL RA [Suspect]
     Active Substance: CERTOLIZUMAB PEGOL
     Indication: PSORIATIC ARTHROPATHY
     Dosage: UNK, 2X/MONTH
     Route: 064
     Dates: start: 20130214, end: 20130910
  2. PRENATAL VITAMINS [Concomitant]
     Active Substance: VITAMINS
     Indication: PRODUCT USED FOR UNKNOWN INDICATION
     Dosage: 1 DF, ONCE DAILY (QD)
     Route: 064
     Dates: start: 20130301, end: 20131018
  3. HYDROCODONE [Concomitant]
     Active Substance: HYDROCODONE
     Indication: PSORIATIC ARTHROPATHY
     Dosage: 30 MG, ONCE DAILY (QD)
     Route: 064
     Dates: start: 20130207, end: 20131018
  4. PENICILLIN [Concomitant]
     Active Substance: PENICILLIN
     Indication: PHARYNGITIS STREPTOCOCCAL
     Dosage: UNK
     Route: 064
     Dates: start: 20130518, end: 20130523
  5. CAFFEINE. [Concomitant]
     Active Substance: CAFFEINE
     Dosage: 16 OZ, 2X/WEEK
     Route: 064
     Dates: start: 20130315, end: 20130613
  6. CAFFEINE. [Concomitant]
     Active Substance: CAFFEINE
     Dosage: 20 OZ, 3.5 WEEKLY
     Route: 064
     Dates: start: 20130613, end: 20131018
  7. CIPROFLOXACIN W/ DEXAMETHASONE [Concomitant]
     Indication: CORNEAL ABRASION
     Dosage: 9.6GTT, DAILY
     Route: 064
     Dates: start: 20130216, end: 20130223
  8. CAFFEINE. [Concomitant]
     Active Substance: CAFFEINE
     Indication: PRODUCT USED FOR UNKNOWN INDICATION
     Dosage: 16 OZ, ONCE DAILY (QD)
     Route: 064
     Dates: start: 20130207, end: 20130315
  9. ERGOCALCIFEROL. [Concomitant]
     Active Substance: ERGOCALCIFEROL
     Indication: OSTEOPENIA
     Dosage: 1 DF, WEEKLY (QW)
     Route: 064
     Dates: start: 20130207, end: 20130419
  10. MONISTAT [Concomitant]
     Active Substance: MICONAZOLE NITRATE
     Indication: FUNGAL INFECTION
     Dosage: 1 DF, ONCE DAILY (QD)
     Route: 064
     Dates: start: 20130401, end: 20130407
  11. CERTOLIZUMAB PEGOL RA [Suspect]
     Active Substance: CERTOLIZUMAB PEGOL
     Indication: PSORIASIS
  12. AMOXICILLIN. [Concomitant]
     Active Substance: AMOXICILLIN
     Indication: URINARY TRACT INFECTION
     Dosage: 500 MG, ONCE DAILY (QD)
     Route: 064
     Dates: start: 20130401, end: 20130410
  13. CIPROFLOXACIN. [Concomitant]
     Active Substance: CIPROFLOXACIN
     Indication: PRODUCT USED FOR UNKNOWN INDICATION
     Dosage: UNK
     Route: 064
     Dates: start: 20130216, end: 20130216
  14. MONISTAT [Concomitant]
     Active Substance: MICONAZOLE NITRATE
     Dosage: 1 DF, ONCE DAILY (QD)
     Route: 064
     Dates: start: 20130527, end: 20130602
  15. MONISTAT [Concomitant]
     Active Substance: MICONAZOLE NITRATE
     Dosage: 1 DF, ONCE DAILY (QD)
     Route: 064
     Dates: start: 20130902, end: 20130909

REACTIONS (2)
  - Autism spectrum disorder [Unknown]
  - Foetal exposure during pregnancy [Unknown]

NARRATIVE: CASE EVENT DATE: 20130214
